FAERS Safety Report 9264802 (Version 1)
Quarter: 2013Q3

REPORT INFORMATION
  Report Type: Spontaneous
  Country: US (occurrence: None)
  Receive Date: 20130430
  Receipt Date: 20130430
  Transmission Date: 20140515
  Serious: Yes (Hospitalization)
  Sender: FDA-Public Use
  Company Number: None

PATIENT
  Age: 61 Year
  Sex: Male
  Weight: 100.6 kg

DRUGS (20)
  1. CELLS, NOS [Suspect]
     Indication: MYELODYSPLASTIC SYNDROME
     Dosage: SINGLE IV INFUSION
     Dates: start: 20121211
  2. GLIPIZIDE [Concomitant]
  3. HUMALOG [Concomitant]
  4. HUMALIN [Concomitant]
  5. LISINOPRIL [Concomitant]
  6. MAGNESIUM [Concomitant]
  7. NIACIN [Concomitant]
  8. OMEPRAZOLE [Concomitant]
  9. OXYCODONE [Concomitant]
  10. PROCHLORPERAZINE MALEATE [Concomitant]
  11. QUETIAPINE FUMARATE [Concomitant]
  12. SIMVASTATIN [Concomitant]
  13. VALCYCLOVIR [Concomitant]
  14. ACTOS [Concomitant]
  15. ALLOPURINOL [Concomitant]
  16. CIPRO [Concomitant]
  17. DAPSONE [Concomitant]
  18. FLUCONAZOLE [Concomitant]
  19. GM-CSF [Suspect]
  20. PLERIXAFOR [Suspect]

REACTIONS (5)
  - Diarrhoea [None]
  - Nausea [None]
  - Abdominal pain [None]
  - Gastrooesophageal reflux disease [None]
  - Graft versus host disease [None]
